FAERS Safety Report 6818491-5 (Version None)
Quarter: 2010Q3

REPORT INFORMATION
  Report Type: 
  Country: None (occurrence: None)
  Receive Date: 20100706
  Receipt Date: 20080916
  Transmission Date: 20110219
  Serious: No
  Sender: FDA-Public Use
  Company Number: US-PFIZER INC-2008078474

PATIENT
  Sex: Female

DRUGS (2)
  1. ZITHROMAX [Suspect]
     Dates: end: 20080901
  2. OMNICEF [Concomitant]

REACTIONS (7)
  - ABDOMINAL PAIN [None]
  - GALLBLADDER DISORDER [None]
  - GALLBLADDER PAIN [None]
  - HEPATIC PAIN [None]
  - LIVER DISORDER [None]
  - PRURITUS [None]
  - RENAL FUNCTION TEST ABNORMAL [None]
